FAERS Safety Report 6404027-X (Version None)
Quarter: 2009Q4

REPORT INFORMATION
  Report Type: 
  Country: None (occurrence: None)
  Receive Date: 20091016
  Receipt Date: 20090819
  Transmission Date: 20100525
  Serious: No
  Sender: FDA-Public Use
  Company Number: US-ALEXION-A200900670

PATIENT
  Sex: Male

DRUGS (15)
  1. SOLIRIS [Suspect]
     Indication: PAROXYSMAL NOCTURNAL HAEMOGLOBINURIA
     Dosage: 600 MG, QW
     Route: 042
     Dates: start: 20090323, end: 20090401
  2. SOLIRIS [Suspect]
     Dosage: 900 MG, Q2W
     Route: 042
     Dates: start: 20090420
  3. AMBIEN [Concomitant]
     Dosage: UNK
     Route: 048
  4. CLARITIN                           /00917501/ [Concomitant]
     Dosage: UNK
     Route: 048
  5. COZAAR [Concomitant]
     Dosage: UNK
     Route: 048
  6. COLACE [Concomitant]
     Dosage: UNK
     Route: 048
  7. FUROSEMIDE [Concomitant]
     Dosage: UNK
     Route: 048
  8. GABAPENTIN [Concomitant]
     Dosage: UNK
     Route: 048
  9. MECLIZINE                          /00072801/ [Concomitant]
     Dosage: UNK
     Route: 048
  10. PAROXETINE [Concomitant]
     Dosage: UNK
     Route: 048
  11. PIROXICAM [Concomitant]
     Dosage: UNK
     Route: 048
  12. SIMVASTATIN [Concomitant]
     Dosage: UNK
     Route: 048
  13. TERAZOSIN HCL [Concomitant]
     Dosage: UNK
     Route: 048
  14. VICODIN [Concomitant]
     Dosage: UNK
     Route: 048
  15. ZOLPIDEM                           /00914902/ [Suspect]
     Dosage: UNK
     Route: 048

REACTIONS (4)
  - FATIGUE [None]
  - HEADACHE [None]
  - MALAISE [None]
  - MYALGIA [None]
